FAERS Safety Report 5127093-0 (Version None)
Quarter: 2006Q4

REPORT INFORMATION
  Report Type: 
  Country: None (occurrence: None)
  Receive Date: 20061013
  Receipt Date: 20061004
  Transmission Date: 20070319
  Serious: Yes (Other)
  Sender: FDA-Public Use
  Company Number: DE-ABBOTT-06P-062-0346302-00

PATIENT
  Sex: Female
  Weight: 58 kg

DRUGS (5)
  1. KLACID PRO [Suspect]
     Indication: PNEUMONIA
     Route: 048
     Dates: start: 20060406, end: 20060412
  2. IRON [Concomitant]
     Indication: IRON DEFICIENCY
     Route: 048
     Dates: start: 20060301, end: 20060601
  3. ACETAMINOPHEN [Concomitant]
     Indication: PAIN
     Route: 048
     Dates: start: 19800101, end: 20060721
  4. NAC 600 [Concomitant]
     Indication: DRUG USE FOR UNKNOWN INDICATION
     Route: 048
     Dates: start: 20060406, end: 20060418
  5. FLUCONAZOLE [Concomitant]
     Indication: DRUG USE FOR UNKNOWN INDICATION
     Route: 048
     Dates: start: 20060304, end: 20060304

REACTIONS (1)
  - AUTOIMMUNE THROMBOCYTOPENIA [None]
